FAERS Safety Report 14524933 (Version 3)
Quarter: 2018Q2

REPORT INFORMATION
  Report Type: Spontaneous
  Country: ES (occurrence: ES)
  Receive Date: 20180213
  Receipt Date: 20180413
  Transmission Date: 20180711
  Serious: Yes (Other)
  Sender: FDA-Public Use
  Company Number: ES-ASTELLAS-2018US007117

PATIENT
  Age: 85 Year
  Sex: Male

DRUGS (5)
  1. MIRABEGRON [Suspect]
     Active Substance: MIRABEGRON
     Route: 048
     Dates: start: 20180226
  2. ESOMEPRAZOLE [Concomitant]
     Active Substance: ESOMEPRAZOLE
     Indication: PROPHYLAXIS
     Route: 065
  3. HIPERTENE [Concomitant]
     Indication: HYPERTENSION
     Route: 065
  4. ASPIRINA INFANTIL [Concomitant]
     Indication: PRODUCT USED FOR UNKNOWN INDICATION
     Dosage: UNK UNK, ONCE DAILY
     Route: 065
  5. MIRABEGRON [Suspect]
     Active Substance: MIRABEGRON
     Indication: PROSTATIC DISORDER
     Route: 048
     Dates: end: 20180219

REACTIONS (3)
  - Pruritus generalised [Recovering/Resolving]
  - Insomnia [Recovering/Resolving]
  - Off label use [Unknown]
